FAERS Safety Report 10181002 (Version 1)
Quarter: 2014Q2

REPORT INFORMATION
  Report Type: Spontaneous
  Country: FR (occurrence: FR)
  Receive Date: 20140519
  Receipt Date: 20140519
  Transmission Date: 20141212
  Serious: Yes (Hospitalization)
  Sender: FDA-Public Use
  Company Number: FR-PFIZER INC-2014136562

PATIENT
  Age: 87 Year
  Sex: Female
  Weight: 60 kg

DRUGS (7)
  1. PANTOPRAZOLE [Suspect]
     Dosage: UNK
     Route: 048
     Dates: end: 20140315
  2. COTAREG [Suspect]
     Indication: HYPERTENSION
     Dosage: 1 DF (VALS 160 MG/ HYDR 25MG)
     Route: 048
     Dates: end: 20140315
  3. IXPRIM [Suspect]
     Indication: PAIN
     Dosage: UNK
     Route: 048
     Dates: end: 20140315
  4. AMLOR [Concomitant]
     Indication: HYPERTENSION
     Dosage: 5 MG, UNK
  5. DOLIPRANE [Concomitant]
     Indication: PAIN
     Dosage: 1 G TID IF PAIN
  6. CACIT VITAMIN D3 [Concomitant]
     Indication: OSTEOPOROSIS
     Dosage: 1 BAG DAILY
  7. LYRICA [Concomitant]
     Indication: PAIN
     Dosage: 75 MG, 1X/DAY

REACTIONS (6)
  - Inappropriate antidiuretic hormone secretion [Recovered/Resolved]
  - Hypokalaemia [Recovered/Resolved]
  - Hyponatraemia [Recovered/Resolved]
  - Syncope [Recovered/Resolved]
  - Diarrhoea [Recovered/Resolved]
  - Trifascicular block [Unknown]
